FAERS Safety Report 26096956 (Version 1)
Quarter: 2025Q4

REPORT INFORMATION
  Report Type: Spontaneous
  Country: AU (occurrence: AU)
  Receive Date: 20251127
  Receipt Date: 20251127
  Transmission Date: 20260118
  Serious: Yes (Other)
  Sender: BAXTER
  Company Number: AU-BAXTER-2025BAX024225

PATIENT
  Age: 86 Year
  Sex: Male

DRUGS (9)
  1. SODIUM CHLORIDE [Suspect]
     Active Substance: SODIUM CHLORIDE
     Dosage: SODIUM CHLORIDE 0.9% 240ML WITH BENZYLPENICILLIN, ADMINISTRATION: VIA DOUBLE LUMEN PICC LINE
     Route: 042
     Dates: start: 20251111
  2. CITRATE [Suspect]
     Active Substance: CITRIC ACID MONOHYDRATE
     Dosage: ADMINISTRATION: VIA DOUBLE LUMEN PICC LINE
     Route: 042
     Dates: start: 20251111
  3. PENICILLIN G [Suspect]
     Active Substance: PENICILLIN G
     Indication: Endocarditis
     Dosage: 4.8G/24H INFUSOR
     Route: 042
     Dates: start: 20251110
  4. PENICILLIN G [Suspect]
     Active Substance: PENICILLIN G
     Dosage: 4800MG IN SODIUM CHLORIDE 0.9% 240ML, ADMINISTRATION: VIA DOUBLE LUMEN PICC LINE (4.8G/24H INFUSOR)
     Route: 042
     Dates: start: 20251111
  5. LERCANIDIPINE [Concomitant]
     Active Substance: LERCANIDIPINE
     Dosage: 10 MG, BID
     Route: 048
  6. ASPIRIN [Concomitant]
     Active Substance: ASPIRIN
     Dosage: 100 MG, DAILY
     Route: 048
  7. ALLOPURINOL [Concomitant]
     Active Substance: ALLOPURINOL
     Dosage: 150 MG, DAILY
     Route: 048
  8. DAPAGLIFLOZIN [Concomitant]
     Active Substance: DAPAGLIFLOZIN
     Dosage: 10 MG, DAILY
     Route: 048
  9. BISOPROLOL [Concomitant]
     Active Substance: BISOPROLOL
     Dosage: 10 MG, DAILY
     Route: 048

REACTIONS (8)
  - Rectal haemorrhage [Unknown]
  - Asthenia [Unknown]
  - Fatigue [Unknown]
  - Infection [Recovering/Resolving]
  - Malaise [Unknown]
  - Decreased appetite [Unknown]
  - Hypotension [Unknown]
  - Device infusion issue [Unknown]

NARRATIVE: CASE EVENT DATE: 20251111
